FAERS Safety Report 10053484 (Version 1)
Quarter: 2014Q2

REPORT INFORMATION
  Report Type: Spontaneous
  Country: GB (occurrence: GB)
  Receive Date: 20140402
  Receipt Date: 20140402
  Transmission Date: 20141212
  Serious: Yes (Other)
  Sender: FDA-Public Use
  Company Number: GB-WATSON-2014-06101

PATIENT
  Age: 18 Year
  Sex: Female
  Weight: 54 kg

DRUGS (1)
  1. PROPRANOLOL (UNKNOWN) [Suspect]
     Indication: ANXIETY
     Dosage: 40 MG, UNKNOWN
     Route: 048
     Dates: start: 20140306

REACTIONS (5)
  - Depression [Recovering/Resolving]
  - Peripheral coldness [Not Recovered/Not Resolved]
  - Chest discomfort [Not Recovered/Not Resolved]
  - Nightmare [Recovering/Resolving]
  - Fatigue [Recovering/Resolving]
